FAERS Safety Report 11555709 (Version 6)
Quarter: 2015Q4

REPORT INFORMATION
  Report Type: Spontaneous
  Country: US (occurrence: US)
  Receive Date: 20150925
  Receipt Date: 20151026
  Transmission Date: 20160304
  Serious: No
  Sender: FDA-Public Use
  Company Number: GXBR2015US001873

PATIENT
  Age: 85 Year
  Sex: Female
  Weight: 66.67 kg

DRUGS (5)
  1. FUROSEMIDE TABLETS USP [Suspect]
     Active Substance: FUROSEMIDE
     Indication: DIURETIC THERAPY
     Dosage: 20 MG, PRN
     Route: 048
     Dates: start: 201310
  2. LATANOPROST. [Suspect]
     Active Substance: LATANOPROST
     Indication: GLAUCOMA
     Dosage: GTT, BID
     Route: 047
     Dates: start: 201407, end: 201507
  3. RESTASIS [Suspect]
     Active Substance: CYCLOSPORINE
     Indication: DRY EYE
     Dosage: 1 GTT, BID
     Route: 047
     Dates: start: 201408, end: 201507
  4. TIMOLOL. [Suspect]
     Active Substance: TIMOLOL
     Indication: GLAUCOMA
     Dosage: 1 GTT, BID
     Route: 047
     Dates: start: 201407, end: 201507
  5. COSOPT [Concomitant]
     Active Substance: DORZOLAMIDE HYDROCHLORIDE\TIMOLOL MALEATE
     Indication: GLAUCOMA
     Dosage: UNK DF, UNK
     Route: 065
     Dates: start: 20150717, end: 20150718

REACTIONS (9)
  - Lacrimation increased [Recovered/Resolved]
  - Vision blurred [Not Recovered/Not Resolved]
  - Eye pain [Recovered/Resolved]
  - Ocular hyperaemia [Not Recovered/Not Resolved]
  - Intraocular pressure increased [Not Recovered/Not Resolved]
  - Dry eye [Not Recovered/Not Resolved]
  - Rhinorrhoea [Recovered/Resolved]
  - Eye irritation [Recovered/Resolved]
  - Drug ineffective [Recovered/Resolved]

NARRATIVE: CASE EVENT DATE: 201408
